FAERS Safety Report 9156801 (Version 1)
Quarter: 2013Q1

REPORT INFORMATION
  Report Type: Spontaneous
  Country: US (occurrence: US)
  Receive Date: 20130312
  Receipt Date: 20130312
  Transmission Date: 20140127
  Serious: Yes (Hospitalization)
  Sender: FDA-Public Use
  Company Number: US-BAYER-2013-027946

PATIENT
  Age: 18 Year
  Sex: Female
  Weight: 49.89 kg

DRUGS (11)
  1. YAZ [Suspect]
  2. YASMIN [Suspect]
  3. OCELLA [Suspect]
  4. PROMETHAZINE [PROMETHAZINE] [Concomitant]
     Dosage: 25 MG, UNK
     Route: 048
  5. XANAX [Concomitant]
     Dosage: 1 MG, TWO TIMES PER DAY
     Route: 048
  6. METHYLPHENIDATE [Concomitant]
     Dosage: 20 MG, ONE TABLET DAILY
     Route: 048
  7. LEXAPRO [Concomitant]
     Dosage: 10 MG, ONE TIME PER DAY
     Route: 048
  8. CONCERTA [Concomitant]
     Dosage: 72 MG, DAILY
     Route: 048
  9. VICODIN [Concomitant]
  10. COLACE [Concomitant]
  11. PERCOCET [OXYCODONE HYDROCHLORIDE,OXYCODONE TEREPHTHALATE,PARACETA [Concomitant]

REACTIONS (1)
  - Deep vein thrombosis [Recovered/Resolved]
